FAERS Safety Report 4774390-4 (Version None)
Quarter: 2005Q3

REPORT INFORMATION
  Report Type: 
  Country: None (occurrence: None)
  Receive Date: 20050921
  Receipt Date: 20050908
  Transmission Date: 20060218
  Serious: Yes (Hospitalization)
  Sender: FDA-Public Use
  Company Number: US-BRISTOL-MYERS SQUIBB COMPANY-13103783

PATIENT
  Age: 65 Year
  Sex: Male
  Weight: 88 kg

DRUGS (21)
  1. ABILIFY [Suspect]
     Route: 048
     Dates: end: 20050907
  2. ABILIFY [Interacting]
     Route: 048
     Dates: start: 20050908
  3. AMIODARONE HCL [Interacting]
  4. ACETAMINOPHEN [Concomitant]
  5. ALBUTEROL [Concomitant]
  6. IPRATROPIUM BROMIDE [Concomitant]
  7. ENTERIC ASPIRIN [Concomitant]
  8. LIPITOR [Concomitant]
  9. DOCUSATE [Concomitant]
  10. LOVENOX [Concomitant]
     Route: 058
  11. FENTANYL CITRATE [Concomitant]
     Route: 062
  12. HYDROCORTISONE [Concomitant]
     Route: 042
  13. LABETALOL [Concomitant]
     Indication: BLOOD PRESSURE
     Route: 042
  14. LISINOPRIL [Concomitant]
  15. LORAZEPAM [Concomitant]
     Route: 042
  16. LOPRESSOR [Concomitant]
  17. REMERON [Concomitant]
  18. PROTONIX [Concomitant]
     Route: 042
  19. ZOSYN [Concomitant]
     Route: 042
  20. HALCION [Concomitant]
     Route: 048
  21. VANCOMYCIN [Concomitant]
     Route: 042

REACTIONS (4)
  - AGITATION [None]
  - ALCOHOL WITHDRAWAL SYNDROME [None]
  - DRUG INTERACTION [None]
  - HYPERTENSION [None]
